FAERS Safety Report 5298704-4 (Version None)
Quarter: 2007Q2

REPORT INFORMATION
  Report Type: 
  Country: None (occurrence: None)
  Receive Date: 20070417
  Receipt Date: 20070412
  Transmission Date: 20071010
  Serious: Yes (Death)
  Sender: FDA-Public Use
  Company Number: PHEH2007US02107

PATIENT
  Age: 56 Year
  Sex: Male

DRUGS (6)
  1. LASIX [Concomitant]
     Dosage: 40 MG, QD
  2. AMIODARONE HCL [Concomitant]
     Dosage: 200 MG, QD
  3. COREG [Concomitant]
     Dosage: 12.5 MG, BID
  4. DIGOXIN [Concomitant]
     Dosage: 0.25 MG, QD
  5. DIOVAN HCT [Suspect]
     Indication: HYPERTENSION
     Dosage: 80MG VAL/12.5MG HCT, QD
     Dates: start: 20050901, end: 20051001
  6. DIOVAN HCT [Suspect]
     Dosage: 160MG VAL/12.5MG HCT, QD
     Dates: start: 20051001

REACTIONS (3)
  - ARRHYTHMIA [None]
  - CARDIOGENIC SHOCK [None]
  - SLEEP APNOEA SYNDROME [None]
